FAERS Safety Report 20649649 (Version 1)
Quarter: 2022Q1

REPORT INFORMATION
  Report Type: Spontaneous
  Country: US (occurrence: US)
  Receive Date: 20220329
  Receipt Date: 20220329
  Transmission Date: 20220424
  Serious: No
  Sender: FDA-Public Use
  Company Number: US-HISAMITSU-2021-US-013950

PATIENT
  Age: 69 Year
  Sex: Female
  Weight: 95.26 kg

DRUGS (6)
  1. SALONPAS PAIN RELIEF [Suspect]
     Active Substance: MENTHOL\METHYL SALICYLATE
     Indication: Analgesic therapy
     Dosage: APPLIED ONE PATCH AND LEFT ON FOR APPROX. 15 HOURS
     Dates: start: 20210623, end: 20210624
  2. METFORMIN [Concomitant]
     Active Substance: METFORMIN HYDROCHLORIDE
  3. LISINOPRIL [Concomitant]
     Active Substance: LISINOPRIL
  4. GLYBURIDE [Concomitant]
     Active Substance: GLYBURIDE
  5. METOPROLOL [Concomitant]
     Active Substance: METOPROLOL
  6. probiotics (non-specific) [Concomitant]

REACTIONS (3)
  - Pruritus [Not Recovered/Not Resolved]
  - Rash [Not Recovered/Not Resolved]
  - Intentional product misuse [Recovered/Resolved]

NARRATIVE: CASE EVENT DATE: 20210623
